FAERS Safety Report 6120107-0 (Version None)
Quarter: 2009Q1

REPORT INFORMATION
  Report Type: 
  Country: None (occurrence: None)
  Receive Date: 20090312
  Receipt Date: 20090303
  Transmission Date: 20090719
  Serious: No
  Sender: FDA-Public Use
  Company Number: C-09-0052-W

PATIENT
  Age: 65 Year
  Sex: Male

DRUGS (1)
  1. RANITDINE              (WOCKHARDT) [Suspect]
     Indication: DYSPEPSIA
     Dosage: 150MG, TWICE DAILY, ORAL
     Route: 048
     Dates: start: 20081208, end: 20081214

REACTIONS (1)
  - CONSTIPATION [None]
